FAERS Safety Report 12602856 (Version 1)
Quarter: 2016Q3

REPORT INFORMATION
  Report Type: Spontaneous
  Country: JP (occurrence: JP)
  Receive Date: 20160728
  Receipt Date: 20160728
  Transmission Date: 20161109
  Serious: Yes (Death)
  Sender: FDA-Public Use
  Company Number: JP-PFIZER INC-2016237174

PATIENT
  Age: 10 Decade

DRUGS (1)
  1. INLYTA [Suspect]
     Active Substance: AXITINIB
     Indication: RENAL CANCER
     Dosage: 10 MG, DAILY
     Route: 048

REACTIONS (2)
  - Asthenia [Unknown]
  - Sudden death [Fatal]

NARRATIVE: CASE EVENT DATE: 20160706
